FAERS Safety Report 10090051 (Version 2)
Quarter: 2014Q3

REPORT INFORMATION
  Report Type: Spontaneous
  Country: US (occurrence: US)
  Receive Date: 20140421
  Receipt Date: 20140902
  Transmission Date: 20150326
  Serious: Yes (Hospitalization, Other)
  Sender: FDA-Public Use
  Company Number: US-BAYER-2014-057157

PATIENT
  Age: 23 Year
  Sex: Female
  Weight: 61.22 kg

DRUGS (1)
  1. YASMIN [Suspect]
     Active Substance: DROSPIRENONE\ETHINYL ESTRADIOL
     Indication: ACNE
     Dosage: UNK
     Dates: start: 1999, end: 2004

REACTIONS (11)
  - Pain [None]
  - Injury [None]
  - Visual impairment [None]
  - Brain injury [None]
  - Gait disturbance [None]
  - Cerebrovascular accident [None]
  - Nervousness [None]
  - Aphasia [None]
  - Cognitive disorder [None]
  - Emotional distress [None]
  - Agraphia [None]

NARRATIVE: CASE EVENT DATE: 200405
